FAERS Safety Report 9005359 (Version 1)
Quarter: 2013Q1

REPORT INFORMATION
  Report Type: Report from Study
  Country: US (occurrence: US)
  Receive Date: 20130108
  Receipt Date: 20130108
  Transmission Date: 20140127
  Serious: Yes (Other)
  Sender: FDA-Public Use
  Company Number: US-PFIZER INC-2013001545

PATIENT
  Age: 5 Year
  Sex: Male

DRUGS (5)
  1. VORICONAZOLE [Suspect]
     Indication: OSTEOMYELITIS FUNGAL
     Dosage: 4MG/KG/DOSE
     Dates: start: 20020130, end: 20020307
  2. VORICONAZOLE [Suspect]
     Dosage: STANDARD DOSE
     Dates: start: 20020314, end: 20020315
  3. VORICONAZOLE [Suspect]
     Dosage: 6 MG/KG/DOSE
     Dates: start: 20020316
  4. CASPOFUNGIN [Suspect]
     Indication: OSTEOMYELITIS FUNGAL
     Dosage: LOAD, 1 MG/KG
  5. CASPOFUNGIN [Suspect]
     Dosage: 0.75 MG/KG/DAY

REACTIONS (2)
  - Hallucination, visual [Unknown]
  - Drug resistance [Unknown]
